FAERS Safety Report 4930007-7 (Version None)
Quarter: 2006Q1

REPORT INFORMATION
  Report Type: 
  Country: None (occurrence: None)
  Receive Date: 20060302
  Receipt Date: 20060125
  Transmission Date: 20060701
  Serious: Yes (Other)
  Sender: FDA-Public Use
  Company Number: PHBS2006JP01561

PATIENT
  Age: 80 Year
  Sex: Male

DRUGS (4)
  1. NEORAL [Suspect]
     Indication: PEMPHIGOID
     Route: 048
  2. PREDNISOLONE [Suspect]
     Indication: PEMPHIGOID
     Route: 048
  3. TETRACYCLINE [Concomitant]
     Route: 048
  4. NICOTINAMIDE [Concomitant]
     Route: 048

REACTIONS (3)
  - OEDEMA PERIPHERAL [None]
  - PELVIC VENOUS THROMBOSIS [None]
  - VASCULAR INSUFFICIENCY [None]
